FAERS Safety Report 17303471 (Version 2)
Quarter: 2020Q1

REPORT INFORMATION
  Report Type: Spontaneous
  Country: US (occurrence: US)
  Receive Date: 20200122
  Receipt Date: 20200218
  Transmission Date: 20200409
  Serious: No
  Sender: FDA-Public Use
  Company Number: US-009507513-2001USA007045

PATIENT
  Sex: Male

DRUGS (2)
  1. VALCHLOR [Concomitant]
     Active Substance: MECHLORETHAMINE
     Dosage: UNK
  2. INTRON A [Suspect]
     Active Substance: INTERFERON ALFA-2B
     Dosage: 18 MM IUNIT/3ML, 0.25 MILLILITER, 3 TIMES A WEEK
     Route: 058

REACTIONS (1)
  - Pruritus [Unknown]
